FAERS Safety Report 9401220 (Version 1)
Quarter: 2013Q3

REPORT INFORMATION
  Report Type: Spontaneous
  Country: GB (occurrence: GB)
  Receive Date: 20130715
  Receipt Date: 20130715
  Transmission Date: 20140515
  Serious: Yes (Disabling, Congenital Anomaly)
  Sender: FDA-Public Use
  Company Number: GB-UCBSA-091984

PATIENT
  Sex: Male

DRUGS (1)
  1. LEVETIRACETAM [Suspect]

REACTIONS (4)
  - Developmental delay [Unknown]
  - Speech disorder developmental [Not Recovered/Not Resolved]
  - Irritability [Unknown]
  - Foetal exposure during pregnancy [Recovered/Resolved]
